FAERS Safety Report 18306451 (Version 1)
Quarter: 2020Q3

REPORT INFORMATION
  Report Type: Spontaneous
  Country: PT (occurrence: PT)
  Receive Date: 20200924
  Receipt Date: 20200924
  Transmission Date: 20201103
  Serious: Yes (Life-Threatening)
  Sender: FDA-Public Use
  Company Number: PT-ACCORD-202428

PATIENT
  Age: 64 Year
  Sex: Female
  Weight: 66 kg

DRUGS (1)
  1. CARBOPLATIN ACCORD [Suspect]
     Active Substance: CARBOPLATIN
     Indication: MALIGNANT PERITONEAL NEOPLASM
     Dosage: AUC 5 CYCLE OF 21/21 DAYS
     Route: 042
     Dates: end: 20200911

REACTIONS (1)
  - Infusion related reaction [Recovered/Resolved]

NARRATIVE: CASE EVENT DATE: 20200911
